FAERS Safety Report 9242454 (Version 2)
Quarter: 2013Q2

REPORT INFORMATION
  Report Type: Report from Study
  Country: BR (occurrence: BR)
  Receive Date: 20130419
  Receipt Date: 20130521
  Transmission Date: 20140414
  Serious: Yes (Life-Threatening, Hospitalization, Other)
  Sender: FDA-Public Use
  Company Number: PHHY2013BR038017

PATIENT
  Sex: Male
  Weight: 60 kg

DRUGS (4)
  1. TEGRETOL [Suspect]
     Indication: EPILEPSY
     Dosage: 3 DF, DAILY
     Route: 048
     Dates: end: 1996
  2. TEGRETOL [Suspect]
     Dosage: 3 DF (400 MG), DAILY
     Route: 048
     Dates: end: 1997
  3. TEGRETOL [Suspect]
     Dosage: 3 DF (400 MG), DAILY
     Route: 048
     Dates: start: 1997
  4. TEGRETOL CR [Suspect]
     Indication: EPILEPSY
     Dosage: 0.5 DF, TID
     Dates: start: 1997, end: 1997

REACTIONS (11)
  - Coma [Recovered/Resolved]
  - Craniocerebral injury [Recovered/Resolved]
  - Fall [Unknown]
  - Pneumonia [Unknown]
  - Pyrexia [Recovered/Resolved]
  - Aphasia [Recovering/Resolving]
  - Nervous system disorder [Recovered/Resolved]
  - Abnormal behaviour [Recovering/Resolving]
  - Drug intolerance [Recovering/Resolving]
  - Convulsion [Unknown]
  - Epilepsy [Recovered/Resolved]
